APPROVED DRUG PRODUCT: WINSTROL
Active Ingredient: STANOZOLOL
Strength: 2MG
Dosage Form/Route: TABLET;ORAL
Application: N012885 | Product #001
Applicant: LUNDBECK INC
Approved: May 14, 1984 | RLD: Yes | RS: No | Type: DISCN